FAERS Safety Report 7745227-6 (Version None)
Quarter: 2011Q3

REPORT INFORMATION
  Report Type: 
  Country: None (occurrence: None)
  Receive Date: 20110819
  Receipt Date: 20110701
  Transmission Date: 20111222
  Serious: No
  Sender: FDA-Public Use
  Company Number: 036686

PATIENT
  Age: 50 Year
  Sex: Female

DRUGS (2)
  1. LACOSAMIDE [Suspect]
     Dosage: (100 MG BID, INITIATED WITH AN UNKNOWN DOSE)
  2. TOPAMAX [Concomitant]

REACTIONS (2)
  - TREMOR [None]
  - DYSKINESIA [None]
